FAERS Safety Report 22082961 (Version 1)
Quarter: 2023Q1

REPORT INFORMATION
  Report Type: Spontaneous
  Country: PT (occurrence: PT)
  Receive Date: 20230310
  Receipt Date: 20230310
  Transmission Date: 20230417
  Serious: Yes (Other)
  Sender: FDA-Public Use
  Company Number: PT-HALEON-PTCH2023HLN010443

PATIENT

DRUGS (3)
  1. FLUTICASONE PROPIONATE [Suspect]
     Active Substance: FLUTICASONE PROPIONATE
     Indication: Asthma
     Dosage: 92 UG, QD
  2. COBICISTAT\DARUNAVIR ETHANOLATE [Suspect]
     Active Substance: COBICISTAT\DARUNAVIR ETHANOLATE
     Indication: Hepatitis C
     Dosage: UNK UNK, QD (800/150 MG PER DAY)
     Dates: start: 2019
  3. RALTEGRAVIR [Concomitant]
     Active Substance: RALTEGRAVIR
     Indication: Hepatitis C
     Dosage: 1200 MG, QD

REACTIONS (13)
  - Cushing^s syndrome [Recovering/Resolving]
  - Hypokalaemia [Recovering/Resolving]
  - Muscular weakness [Unknown]
  - Asthenia [Unknown]
  - Weight decreased [Unknown]
  - Hypertension [Recovering/Resolving]
  - Cushingoid [Recovering/Resolving]
  - Plethoric face [Recovering/Resolving]
  - Lipohypertrophy [Recovering/Resolving]
  - Abdominal distension [Recovering/Resolving]
  - Skin striae [Recovering/Resolving]
  - Metabolic disorder [Recovering/Resolving]
  - Drug interaction [Unknown]
